FAERS Safety Report 9209712 (Version 1)
Quarter: 2013Q1

REPORT INFORMATION
  Report Type: Spontaneous
  Country: US (occurrence: None)
  Receive Date: 20120820
  Receipt Date: 20120820
  Transmission Date: 20140127
  Serious: No
  Sender: FDA-Public Use
  Company Number: 1000030275

PATIENT
  Age: 57 Year
  Sex: Female

DRUGS (4)
  1. VIIBRYD [Suspect]
     Indication: DEPRESSION
     Dates: start: 201203, end: 2012
  2. FEMARA (LETROZOLE)-(LETROZOLE) [Concomitant]
  3. LORAZEPAM (LORAZEPAM) (LORAZEPAM) [Concomitant]
  4. OMEPRAZOLE (OMEPRAZOLE) (OMEPRAZOLE) [Concomitant]

REACTIONS (3)
  - Insomnia [None]
  - Feeling hot [None]
  - Muscle spasms [None]
